FAERS Safety Report 4993202-7 (Version None)
Quarter: 2006Q1

REPORT INFORMATION
  Report Type: 
  Country: None (occurrence: None)
  Receive Date: 20060313
  Receipt Date: 20051129
  Transmission Date: 20060701
  Serious: No
  Sender: FDA-Public Use
  Company Number: 2005-BP-20752BP

PATIENT

DRUGS (1)
  1. SPIRIVA [Suspect]
     Dosage: (18MCG), IH
     Route: 055

REACTIONS (1)
  - MUSCLE SPASMS [None]
